FAERS Safety Report 16833706 (Version 1)
Quarter: 2019Q3

REPORT INFORMATION
  Report Type: Spontaneous
  Country: IT (occurrence: IT)
  Receive Date: 20190920
  Receipt Date: 20190920
  Transmission Date: 20191005
  Serious: Yes (Hospitalization)
  Sender: FDA-Public Use
  Company Number: IT-009507513-1909ITA006285

PATIENT
  Age: 91 Year
  Sex: Male

DRUGS (1)
  1. CUBICIN [Suspect]
     Active Substance: DAPTOMYCIN
     Indication: PNEUMONIA
     Dosage: 500 MILLIGRAM, QD
     Route: 042

REACTIONS (2)
  - Hepatic failure [Recovering/Resolving]
  - Headache [Recovering/Resolving]
